FAERS Safety Report 9103292 (Version 8)
Quarter: 2015Q2

REPORT INFORMATION
  Report Type: Spontaneous
  Country: US (occurrence: US)
  Receive Date: 20130219
  Receipt Date: 20150505
  Transmission Date: 20150821
  Serious: Yes (Disabling)
  Sender: FDA-Public Use
  Company Number: US-009507513-1302USA007237

PATIENT
  Sex: Male

DRUGS (2)
  1. PROSCAR [Suspect]
     Active Substance: FINASTERIDE
     Indication: POLLAKIURIA
     Dosage: 5 MG, UNK
     Route: 048
     Dates: start: 20020516, end: 20021106
  2. PROPECIA [Suspect]
     Active Substance: FINASTERIDE
     Indication: ALOPECIA
     Dosage: 1 MG, UNK
     Route: 048
     Dates: start: 20000417, end: 2010

REACTIONS (31)
  - Sensory loss [Unknown]
  - Skin neoplasm excision [Unknown]
  - Overdose [Unknown]
  - Proctalgia [Not Recovered/Not Resolved]
  - Ejaculation delayed [Unknown]
  - Irritable bowel syndrome [Unknown]
  - Emotional distress [Not Recovered/Not Resolved]
  - Vein disorder [Unknown]
  - Bladder neck obstruction [Unknown]
  - Urinary tract disorder [Unknown]
  - Scrotal varicose veins [Unknown]
  - Autonomic nervous system imbalance [Unknown]
  - Depression [Not Recovered/Not Resolved]
  - Erectile dysfunction [Not Recovered/Not Resolved]
  - Orgasmic sensation decreased [Not Recovered/Not Resolved]
  - Semen analysis abnormal [Unknown]
  - Infertility [Unknown]
  - Breast enlargement [Unknown]
  - Bladder hypertrophy [Unknown]
  - Hypogonadism male [Unknown]
  - Gynaecomastia [Unknown]
  - Semen analysis abnormal [Unknown]
  - Anxiety [Not Recovered/Not Resolved]
  - Hypoaesthesia [Unknown]
  - Semen volume decreased [Unknown]
  - Testicular atrophy [Unknown]
  - Sexual dysfunction [Not Recovered/Not Resolved]
  - Loss of libido [Unknown]
  - Musculoskeletal chest pain [Unknown]
  - Prostatitis [Unknown]
  - Blood cortisol decreased [Unknown]

NARRATIVE: CASE EVENT DATE: 2000
